FAERS Safety Report 4285996-3 (Version None)
Quarter: 2004Q1

REPORT INFORMATION
  Report Type: 
  Country: None (occurrence: None)
  Receive Date: 20040203
  Receipt Date: 20040122
  Transmission Date: 20041129
  Serious: Yes (Other)
  Sender: FDA-Public Use
  Company Number: FR-SHR-03-016791

PATIENT
  Age: 52 Year
  Sex: Male
  Weight: 75 kg

DRUGS (5)
  1. BETAFERON(INTERFERON BETA - 1B) INJECTION [Suspect]
     Indication: MULTIPLE SCLEROSIS
     Dosage: 8 MIU/ML, EVERY 2D, SUBCUTANEOUS
     Route: 058
     Dates: start: 19950310, end: 20011101
  2. BETAFERON(INTERFERON BETA - 1B) INJECTION [Suspect]
     Indication: MULTIPLE SCLEROSIS
     Dosage: 8 MIU/ML, EVERY 2D, SUBCUTANEOUS
     Route: 058
     Dates: start: 20020101, end: 20030301
  3. BETAFERON(INTERFERON BETA - 1B) INJECTION [Suspect]
     Indication: MULTIPLE SCLEROSIS
     Dosage: 8 MIU/ML, EVERY 2D, SUBCUTANEOUS
     Route: 058
     Dates: start: 20030913, end: 20030922
  4. NOVANTRONE  LEDERLE  (MITOXANTRONE HYDROCHLORIDE) [Concomitant]
  5. BETAFERON(INTERFERON BETA -1B) [Suspect]

REACTIONS (8)
  - DIPLEGIA [None]
  - DISEASE RECURRENCE [None]
  - INJECTION SITE ANAESTHESIA [None]
  - INJECTION SITE HAEMORRHAGE [None]
  - INJECTION SITE PAIN [None]
  - MYALGIA [None]
  - PARESIS [None]
  - TENDONITIS [None]
